FAERS Safety Report 20616968 (Version 1)
Quarter: 2022Q1

REPORT INFORMATION
  Report Type: Spontaneous
  Country: US (occurrence: US)
  Receive Date: 20220321
  Receipt Date: 20220321
  Transmission Date: 20220423
  Serious: No
  Sender: FDA-Public Use
  Company Number: US-PFIZER INC-2021615990

PATIENT
  Age: 62 Year
  Sex: Male

DRUGS (1)
  1. GABAPENTIN [Suspect]
     Active Substance: GABAPENTIN
     Dosage: 300 MG
     Route: 048

REACTIONS (4)
  - Illness [Recovered/Resolved]
  - Movement disorder [Recovered/Resolved]
  - Drug hypersensitivity [Unknown]
  - Rash [Recovered/Resolved]
